APPROVED DRUG PRODUCT: METFORMIN HYDROCHLORIDE
Active Ingredient: METFORMIN HYDROCHLORIDE
Strength: 1GM
Dosage Form/Route: TABLET, EXTENDED RELEASE;ORAL
Application: A215629 | Product #002
Applicant: RK PHARMA INC
Approved: Jun 20, 2023 | RLD: No | RS: No | Type: DISCN